FAERS Safety Report 7221059-2 (Version None)
Quarter: 2011Q1

REPORT INFORMATION
  Report Type: 
  Country: None (occurrence: None)
  Receive Date: 20110112
  Receipt Date: 20110109
  Transmission Date: 20110831
  Serious: No
  Sender: FDA-Public Use
  Company Number: US-PFIZER INC-2011005150

PATIENT
  Sex: Male
  Weight: 90.703 kg

DRUGS (1)
  1. VIAGRA [Suspect]
     Dosage: 100 MG, SINGLE
     Route: 048
     Dates: start: 20110109

REACTIONS (3)
  - DRUG ADMINISTRATION ERROR [None]
  - PENIS DISORDER [None]
  - PAINFUL ERECTION [None]
